FAERS Safety Report 13522015 (Version 1)
Quarter: 2017Q2

REPORT INFORMATION
  Report Type: Spontaneous
  Country: US (occurrence: US)
  Receive Date: 20170506
  Receipt Date: 20170506
  Transmission Date: 20170830
  Serious: No
  Sender: FDA-Public Use
  Company Number: None

PATIENT
  Age: 54 Year
  Sex: Male

DRUGS (1)
  1. RIBASPHERE [Suspect]
     Active Substance: RIBAVIRIN

REACTIONS (4)
  - Breathing-related sleep disorder [None]
  - Nausea [None]
  - Headache [None]
  - Chromaturia [None]

NARRATIVE: CASE EVENT DATE: 20170506
